FAERS Safety Report 24405193 (Version 1)
Quarter: 2024Q4

REPORT INFORMATION
  Report Type: Spontaneous
  Country: CN (occurrence: CN)
  Receive Date: 20241007
  Receipt Date: 20241007
  Transmission Date: 20250114
  Serious: No
  Sender: ROCHE
  Company Number: CN-ROCHE-3571701

PATIENT
  Age: 58 Year
  Sex: Male
  Weight: 79.0 kg

DRUGS (5)
  1. GAZYVA [Suspect]
     Active Substance: OBINUTUZUMAB
     Indication: Follicular lymphoma stage IV
     Route: 042
     Dates: start: 20231031, end: 20231031
  2. CYCLOPHOSPHAMIDE [Concomitant]
     Active Substance: CYCLOPHOSPHAMIDE
     Dates: start: 20231030
  3. DOXORUBICIN [Concomitant]
     Active Substance: DOXORUBICIN
     Dates: start: 20231030
  4. VINCRISTINE [Concomitant]
     Active Substance: VINCRISTINE
     Dates: start: 20231030
  5. PREDNISONE [Concomitant]
     Active Substance: PREDNISONE
     Dates: start: 20231030

REACTIONS (3)
  - Oropharyngeal discomfort [Recovering/Resolving]
  - Chills [Recovering/Resolving]
  - Blood pressure systolic increased [Recovering/Resolving]

NARRATIVE: CASE EVENT DATE: 20231031
